FAERS Safety Report 20628988 (Version 1)
Quarter: 2022Q1

REPORT INFORMATION
  Report Type: Spontaneous
  Country: US (occurrence: US)
  Receive Date: 20220323
  Receipt Date: 20220323
  Transmission Date: 20220423
  Serious: Yes (Other)
  Sender: FDA-Public Use
  Company Number: US-JAZZ-2022-US-008578

PATIENT
  Sex: Male

DRUGS (1)
  1. SUNOSI [Suspect]
     Active Substance: SOLRIAMFETOL
     Indication: Narcolepsy
     Dosage: TAKE 1 TABLET BY MOUTH ONCE DAILY AS DIRECTED
     Route: 048
     Dates: start: 20211201, end: 20220222

REACTIONS (2)
  - Narcolepsy [Unknown]
  - Drug ineffective [Unknown]
